FAERS Safety Report 8433591-4 (Version None)
Quarter: 2012Q2

REPORT INFORMATION
  Report Type: 
  Country: None (occurrence: None)
  Receive Date: 20120613
  Receipt Date: 20120611
  Transmission Date: 20120825
  Serious: Yes (Hospitalization)
  Sender: FDA-Public Use
  Company Number: US-BAYER-2012-058177

PATIENT
  Age: 51 Year
  Sex: Female

DRUGS (1)
  1. MAGNEVIST [Suspect]
     Dosage: 12 ML, ONCE
     Dates: start: 20120611, end: 20120611

REACTIONS (3)
  - URTICARIA [None]
  - PRESYNCOPE [None]
  - PRURITUS [None]
